FAERS Safety Report 8561364-0 (Version None)
Quarter: 2012Q3

REPORT INFORMATION
  Report Type: 
  Country: None (occurrence: None)
  Receive Date: 20120802
  Receipt Date: 20120725
  Transmission Date: 20120928
  Serious: Yes (Hospitalization)
  Sender: FDA-Public Use
  Company Number: US-B.I. PHARMACEUTICALS,INC./RIDGEFIELD-2012-BP-17317YA

PATIENT
  Sex: Male

DRUGS (4)
  1. EZETIMIBE/SIMVASTATIN [Concomitant]
  2. INFLUENZA VACCIN (INFLUENZA VACCINE) [Concomitant]
  3. ESOMEZOL [Concomitant]
  4. TAMSULOSIN HCL [Suspect]
     Route: 065

REACTIONS (8)
  - SINUSITIS [None]
  - EOSINOPHILIA [None]
  - COUGH [None]
  - MANTLE CELL LYMPHOMA [None]
  - RESTRICTIVE PULMONARY DISEASE [None]
  - EOSINOPHILIC PNEUMONIA CHRONIC [None]
  - DYSPNOEA EXERTIONAL [None]
  - ASTHMA [None]
